FAERS Safety Report 7487950-7 (Version None)
Quarter: 2011Q2

REPORT INFORMATION
  Report Type: 
  Country: None (occurrence: None)
  Receive Date: 20110518
  Receipt Date: 20110516
  Transmission Date: 20111010
  Serious: Yes (Other)
  Sender: FDA-Public Use
  Company Number: US-PFIZER INC-2011104721

PATIENT
  Sex: Female

DRUGS (2)
  1. ADVIL LIQUI-GELS [Suspect]
     Indication: MUSCLE SPASMS
     Dosage: UNK
     Dates: start: 20110401
  2. NAPROXEN (ALEVE) [Suspect]
     Indication: MUSCLE SPASMS
     Dosage: UNK
     Dates: start: 20110401

REACTIONS (1)
  - VASCULAR RUPTURE [None]
